FAERS Safety Report 7554872-2 (Version None)
Quarter: 2011Q2

REPORT INFORMATION
  Report Type: 
  Country: None (occurrence: None)
  Receive Date: 20110617
  Receipt Date: 20110615
  Transmission Date: 20111010
  Serious: Yes (Other)
  Sender: FDA-Public Use
  Company Number: US-BRISTOL-MYERS SQUIBB COMPANY-15422512

PATIENT
  Age: 84 Year
  Sex: Male

DRUGS (6)
  1. MEPERIDINE HCL [Concomitant]
     Route: 042
  2. PIPERACILLIN [Concomitant]
     Route: 042
     Dates: start: 20101127, end: 20101203
  3. ATENOLOL [Concomitant]
  4. SERTRALINE HYDROCHLORIDE [Concomitant]
  5. FINASTERIDE [Concomitant]
  6. COUMADIN [Suspect]
     Indication: ATRIAL FIBRILLATION
     Dosage: ALSO TAKEN AS 5MG TABS FORMULATION
     Route: 048
     Dates: start: 20101201

REACTIONS (1)
  - INTERNATIONAL NORMALISED RATIO ABNORMAL [None]
